FAERS Safety Report 8924473 (Version 1)
Quarter: 2012Q4

REPORT INFORMATION
  Report Type: 
  Country: AT (occurrence: AT)
  Receive Date: 20121126
  Receipt Date: 20121126
  Transmission Date: 20130627
  Serious: Yes (Hospitalization)
  Sender: FDA-Public Use
  Company Number: AT-009507513-1211AUT008938

PATIENT
  Sex: Male

DRUGS (1)
  1. TEMODAL [Suspect]
     Dosage: UNK
     Dates: start: 2012

REACTIONS (2)
  - Overdose [Unknown]
  - Pancytopenia [Unknown]
